FAERS Safety Report 26051498 (Version 1)
Quarter: 2025Q4

REPORT INFORMATION
  Report Type: Spontaneous
  Country: EU (occurrence: EU)
  Receive Date: 20251117
  Receipt Date: 20251117
  Transmission Date: 20260119
  Serious: Yes (Other)
  Sender: ACCORD
  Company Number: None

PATIENT
  Age: 58 Year
  Sex: Female
  Weight: 68.8 kg

DRUGS (2)
  1. ANASTROZOLE [Suspect]
     Active Substance: ANASTROZOLE
     Indication: Breast cancer
     Dates: start: 20220601, end: 20250726
  2. EZETIMIBE\ROSUVASTATIN CALCIUM [Suspect]
     Active Substance: EZETIMIBE\ROSUVASTATIN CALCIUM
     Indication: Dyslipidaemia
     Dates: start: 20241201

REACTIONS (1)
  - Hepatic cytolysis [Not Recovered/Not Resolved]

NARRATIVE: CASE EVENT DATE: 20250101
